FAERS Safety Report 15331070 (Version 1)
Quarter: 2018Q3

REPORT INFORMATION
  Report Type: Spontaneous
  Country: US (occurrence: US)
  Receive Date: 20180829
  Receipt Date: 20180829
  Transmission Date: 20181010
  Serious: No
  Sender: FDA-Public Use
  Company Number: US-BRACCO-2017US03981

PATIENT
  Sex: Female

DRUGS (2)
  1. NORMAL SALINE [Concomitant]
     Active Substance: SODIUM CHLORIDE
     Dosage: 6.93 ML OVER 4 MINUTES
     Route: 042
     Dates: start: 20170821, end: 20170821
  2. KINEVAC [Suspect]
     Active Substance: SINCALIDE
     Indication: ULTRASOUND BILIARY TRACT
     Dosage: 1.07 ML OVER 4 MINUTES
     Route: 042
     Dates: start: 20170821, end: 20170821

REACTIONS (3)
  - Product physical consistency issue [Unknown]
  - Product quality issue [Unknown]
  - Drug ineffective [Unknown]

NARRATIVE: CASE EVENT DATE: 20170821
